FAERS Safety Report 17398814 (Version 3)
Quarter: 2020Q1

REPORT INFORMATION
  Report Type: Report from Study
  Country: GB (occurrence: GB)
  Receive Date: 20200210
  Receipt Date: 20200305
  Transmission Date: 20200409
  Serious: Yes (Hospitalization)
  Sender: FDA-Public Use
  Company Number: GB-CELGENEUS-GBR-20200110751

PATIENT
  Age: 67 Year
  Sex: Male
  Weight: 62.7 kg

DRUGS (2)
  1. ABRAXANE [Suspect]
     Active Substance: PACLITAXEL
     Indication: PANCREATIC CARCINOMA
     Dosage: 225 MILLIGRAM
     Route: 041
     Dates: start: 20200122, end: 20200205
  2. GEMCITABINE. [Suspect]
     Active Substance: GEMCITABINE
     Indication: PANCREATIC CARCINOMA
     Dosage: 1900 MILLIGRAM
     Route: 041
     Dates: start: 20200122, end: 20200205

REACTIONS (3)
  - Constipation [Recovered/Resolved]
  - Lethargy [Recovered/Resolved]
  - Candida infection [Recovered/Resolved]

NARRATIVE: CASE EVENT DATE: 20200124
